FAERS Safety Report 19055164 (Version 3)
Quarter: 2021Q2

REPORT INFORMATION
  Report Type: Report from Study
  Country: None (occurrence: IL)
  Receive Date: 20210325
  Receipt Date: 20210622
  Transmission Date: 20210717
  Serious: Yes (Hospitalization, Disabling)
  Sender: FDA-Public Use
  Company Number: IL-ABBVIE-21K-082-3827959-00

PATIENT
  Age: 78 Year
  Sex: Male
  Weight: 74 kg

DRUGS (14)
  1. VENETOCLAX. [Suspect]
     Active Substance: VENETOCLAX
     Route: 048
     Dates: start: 20200802, end: 202009
  2. VENETOCLAX. [Suspect]
     Active Substance: VENETOCLAX
     Route: 048
     Dates: start: 20200921, end: 20201006
  3. OBINUTUZUMAB. [Suspect]
     Active Substance: OBINUTUZUMAB
     Dosage: CYCLE 4
     Route: 065
     Dates: start: 20200921, end: 20200921
  4. VENETOCLAX. [Suspect]
     Active Substance: VENETOCLAX
     Route: 048
     Dates: start: 20200728, end: 20200801
  5. OBINUTUZUMAB. [Suspect]
     Active Substance: OBINUTUZUMAB
     Indication: PRODUCT USED FOR UNKNOWN INDICATION
     Dosage: CYCLE 2
     Route: 065
     Dates: start: 20200721, end: 20200721
  6. VERAPRESS [Concomitant]
     Indication: HYPERTENSION
  7. VENETOCLAX. [Suspect]
     Active Substance: VENETOCLAX
     Route: 048
     Dates: start: 20201110, end: 20210321
  8. NEUPOGEN [Concomitant]
     Active Substance: FILGRASTIM
     Indication: PROPHYLAXIS
     Dates: start: 20200818
  9. VENETOCLAX. [Suspect]
     Active Substance: VENETOCLAX
     Route: 048
     Dates: start: 20210405
  10. OBINUTUZUMAB. [Suspect]
     Active Substance: OBINUTUZUMAB
     Dosage: CYCLE 6
     Route: 065
     Dates: start: 20201116, end: 20201116
  11. VENETOCLAX. [Suspect]
     Active Substance: VENETOCLAX
     Indication: CHRONIC LYMPHOCYTIC LEUKAEMIA
     Route: 048
     Dates: start: 20200721, end: 20200727
  12. OBINUTUZUMAB. [Suspect]
     Active Substance: OBINUTUZUMAB
     Dosage: CYCLE 3
     Route: 065
     Dates: start: 20200818, end: 20200818
  13. OBINUTUZUMAB. [Suspect]
     Active Substance: OBINUTUZUMAB
     Dosage: CYCLE 5
     Route: 065
     Dates: start: 20201019, end: 20201019
  14. ALLOPURINOL. [Concomitant]
     Active Substance: ALLOPURINOL
     Indication: PROPHYLAXIS
     Dates: start: 20200621, end: 20200707

REACTIONS (3)
  - Neutropenia [Recovered/Resolved]
  - Femur fracture [Recovered/Resolved]
  - Neutropenia [Recovered/Resolved]

NARRATIVE: CASE EVENT DATE: 20201006
